FAERS Safety Report 11030697 (Version 1)
Quarter: 2015Q2

REPORT INFORMATION
  Report Type: Spontaneous
  Country: DE (occurrence: DE)
  Receive Date: 20150415
  Receipt Date: 20150415
  Transmission Date: 20150821
  Serious: Yes (Other)
  Sender: FDA-Public Use
  Company Number: DE-JNJFOC-20150400144

PATIENT
  Age: 71 Year
  Sex: Male

DRUGS (6)
  1. STELARA [Suspect]
     Active Substance: USTEKINUMAB
     Indication: PSORIASIS
     Route: 058
     Dates: start: 20150303
  2. STELARA [Suspect]
     Active Substance: USTEKINUMAB
     Indication: PSORIASIS
     Route: 058
     Dates: start: 20150216
  3. STELARA [Suspect]
     Active Substance: USTEKINUMAB
     Indication: POLYARTHRITIS
     Route: 058
     Dates: start: 20150216
  4. STELARA [Suspect]
     Active Substance: USTEKINUMAB
     Indication: RHEUMATIC DISORDER
     Route: 058
     Dates: start: 20150303
  5. STELARA [Suspect]
     Active Substance: USTEKINUMAB
     Indication: RHEUMATIC DISORDER
     Route: 058
     Dates: start: 20150216
  6. STELARA [Suspect]
     Active Substance: USTEKINUMAB
     Indication: POLYARTHRITIS
     Route: 058
     Dates: start: 20150303

REACTIONS (12)
  - Dysphagia [Not Recovered/Not Resolved]
  - Feeling hot [Not Recovered/Not Resolved]
  - Paraesthesia [Not Recovered/Not Resolved]
  - Anxiety [Not Recovered/Not Resolved]
  - Pain [Not Recovered/Not Resolved]
  - Toothache [Not Recovered/Not Resolved]
  - Respiratory distress [Not Recovered/Not Resolved]
  - Diarrhoea [Not Recovered/Not Resolved]
  - Claustrophobia [Not Recovered/Not Resolved]
  - Hyperhidrosis [Not Recovered/Not Resolved]
  - Cough [Not Recovered/Not Resolved]
  - Swelling [Not Recovered/Not Resolved]

NARRATIVE: CASE EVENT DATE: 20150216
